FAERS Safety Report 10229441 (Version 1)
Quarter: 2014Q2

REPORT INFORMATION
  Report Type: Report from Study
  Country: JP (occurrence: None)
  Receive Date: 20140609
  Receipt Date: 20140609
  Transmission Date: 20141212
  Serious: Yes (Death, Hospitalization, Other)
  Sender: FDA-Public Use
  Company Number: ABR_01100_2013

PATIENT
  Age: 62 Year
  Sex: Female
  Weight: 57 kg

DRUGS (2)
  1. GLIADEL (GLIADEL-CARMUSTINE) 7.7 MG [Suspect]
     Indication: MALIGNANT GLIOMA
     Dosage: (61.6 MG, 8 DOSAGE FORMS, ONCE) INTRACEREBRAL
     Dates: start: 20130409
  2. TEMODAL [Concomitant]

REACTIONS (4)
  - Hemiplegia [None]
  - Somnolence [None]
  - Post procedural haemorrhage [None]
  - Brain oedema [None]
